FAERS Safety Report 25948896 (Version 1)
Quarter: 2025Q4

REPORT INFORMATION
  Report Type: Spontaneous
  Country: TR (occurrence: TR)
  Receive Date: 20251022
  Receipt Date: 20251022
  Transmission Date: 20260117
  Serious: Yes (Other)
  Sender: Alora Pharma
  Company Number: TR-ACELLA PHARMACEUTICALS, LLC-2025ALO02559

PATIENT
  Age: 42 Year
  Sex: Female

DRUGS (5)
  1. PSEUDOEPHEDRINE HYDROCHLORIDE [Suspect]
     Active Substance: PSEUDOEPHEDRINE HYDROCHLORIDE
     Indication: Upper respiratory tract infection
     Dosage: 30 MG
     Route: 065
     Dates: start: 20240113
  2. IBUPROFEN [Concomitant]
     Active Substance: IBUPROFEN
     Indication: Upper respiratory tract infection
     Dosage: INITIAL; UNKNOWN
     Route: 065
     Dates: start: 20240109
  3. IBUPROFEN [Concomitant]
     Active Substance: IBUPROFEN
     Dosage: 200 MG
     Route: 065
     Dates: start: 20240113
  4. AMOXICILLIN\CLAVULANIC ACID [Concomitant]
     Active Substance: AMOXICILLIN\CLAVULANIC ACID
     Indication: Upper respiratory tract infection
     Dosage: 1000 MG
     Route: 065
  5. CHLORPHENIRAMINE MALEATE [Concomitant]
     Active Substance: CHLORPHENIRAMINE MALEATE
     Indication: Upper respiratory tract infection
     Dosage: 4 MG
     Route: 065

REACTIONS (1)
  - Delusion of replacement [Recovering/Resolving]

NARRATIVE: CASE EVENT DATE: 20240115
